FAERS Safety Report 16606801 (Version 1)
Quarter: 2019Q3

REPORT INFORMATION
  Report Type: Report from Study
  Country: None (occurrence: BR)
  Receive Date: 20190722
  Receipt Date: 20190722
  Transmission Date: 20191004
  Serious: Yes (Other)
  Sender: FDA-Public Use
  Company Number: BR-ABBVIE-19K-020-2858721-00

PATIENT
  Sex: Male

DRUGS (1)
  1. HUMIRA [Suspect]
     Active Substance: ADALIMUMAB
     Indication: PSORIATIC ARTHROPATHY
     Route: 058
     Dates: start: 20180901

REACTIONS (6)
  - Impaired work ability [Unknown]
  - Mental disorder [Unknown]
  - Anxiety [Unknown]
  - Depression [Unknown]
  - Road traffic accident [Unknown]
  - Skin exfoliation [Unknown]
